FAERS Safety Report 15293394 (Version 2)
Quarter: 2019Q4

REPORT INFORMATION
  Report Type: Spontaneous
  Country: DE (occurrence: DE)
  Receive Date: 20180820
  Receipt Date: 20191226
  Transmission Date: 20200122
  Serious: Yes (Life-Threatening, Hospitalization, Other)
  Sender: FDA-Public Use
  Company Number: DE-TEVA-2018-DE-943861

PATIENT
  Age: 60 Year
  Sex: Male
  Weight: 94 kg

DRUGS (3)
  1. VALSARTAN 160 MG 1A PHARMA [Suspect]
     Active Substance: VALSARTAN
     Dates: start: 2016, end: 2017
  2. VALSARTAN. [Suspect]
     Active Substance: VALSARTAN
     Indication: HYPERTENSION
     Dosage: VALSARTAN 160 MG HEUMANN
     Route: 065
     Dates: start: 2017, end: 2018
  3. VALSARTAN. [Suspect]
     Active Substance: VALSARTAN
     Route: 065
     Dates: start: 2016, end: 2018

REACTIONS (1)
  - Oesophageal carcinoma [Not Recovered/Not Resolved]

NARRATIVE: CASE EVENT DATE: 201806
